FAERS Safety Report 11257288 (Version 2)
Quarter: 2015Q3

REPORT INFORMATION
  Report Type: Spontaneous
  Country: MX (occurrence: MX)
  Receive Date: 20150709
  Receipt Date: 20150721
  Transmission Date: 20151125
  Serious: Yes (Death, Hospitalization, Congenital Anomaly)
  Sender: FDA-Public Use
  Company Number: MX-MYLANLABS-2015M1022864

PATIENT

DRUGS (1)
  1. AMITRIPTYLINE [Suspect]
     Active Substance: AMITRIPTYLINE
     Indication: DEPRESSION
     Dosage: ONCE DAILY
     Route: 064

REACTIONS (6)
  - Ventricular tachycardia [Fatal]
  - Long QT syndrome congenital [Fatal]
  - Foetal exposure during pregnancy [Fatal]
  - Cardiac fibrillation [Fatal]
  - Heart block congenital [Fatal]
  - Hydrops foetalis [Fatal]
